FAERS Safety Report 4279698-7 (Version None)
Quarter: 2004Q1

REPORT INFORMATION
  Report Type: 
  Country: None (occurrence: None)
  Receive Date: 20040122
  Receipt Date: 20040109
  Transmission Date: 20041129
  Serious: Yes (Hospitalization)
  Sender: FDA-Public Use
  Company Number: 2004001710

PATIENT
  Age: 82 Year
  Sex: Male
  Weight: 92 kg

DRUGS (7)
  1. AMLODIPINE [Suspect]
     Indication: ILL-DEFINED DISORDER
     Dosage: 10 MG (DAILY), ORAL
     Route: 048
  2. ALLOPURINOL [Suspect]
     Indication: ILL-DEFINED DISORDER
     Dosage: 200 MG (DAILY), ORAL
     Route: 048
  3. INFLUENZA VIRUS VACCINE POLYVALENT (INFLUENZA VIRUS VACCINEPOLYVALENT) [Suspect]
     Indication: ILL-DEFINED DISORDER
     Dosage: (DAILY) , INTRAMUSCULAR
     Route: 030
     Dates: start: 20031113
  4. NICORANDIL (NICORANDIL) [Concomitant]
  5. ATENOLOL [Concomitant]
  6. CICLETANINE (CICLETANINE) [Concomitant]
  7. LANSOPRAZOLE [Concomitant]

REACTIONS (13)
  - DYSPNOEA [None]
  - HYPERSENSITIVITY [None]
  - IMMUNE SYSTEM DISORDER [None]
  - MENINGOCOCCAL INFECTION [None]
  - PETECHIAE [None]
  - PNEUMOCOCCAL INFECTION [None]
  - PURPURA [None]
  - PYREXIA [None]
  - RHINITIS [None]
  - SEPSIS [None]
  - TACHYCARDIA [None]
  - TOXIC SKIN ERUPTION [None]
  - VASCULITIS [None]
